FAERS Safety Report 14352099 (Version 1)
Quarter: 2018Q1

REPORT INFORMATION
  Report Type: Spontaneous
  Country: US (occurrence: US)
  Receive Date: 20180103
  Receipt Date: 20180103
  Transmission Date: 20180509
  Serious: Yes (Life-Threatening)
  Sender: FDA-Public Use
  Company Number: None

PATIENT
  Age: 75 Year
  Sex: Female
  Weight: 72.3 kg

DRUGS (1)
  1. VARUBI [Suspect]
     Active Substance: ROLAPITANT
     Indication: VOMITING
     Route: 042
     Dates: start: 20171227, end: 20171227

REACTIONS (4)
  - Infusion related reaction [None]
  - Back pain [None]
  - Dyspnoea [None]
  - Neck pain [None]

NARRATIVE: CASE EVENT DATE: 20171227
